FAERS Safety Report 15371148 (Version 1)
Quarter: 2018Q3

REPORT INFORMATION
  Report Type: Spontaneous
  Country: US (occurrence: US)
  Receive Date: 20180905
  Receipt Date: 20180905
  Transmission Date: 20181010
  Serious: No
  Sender: FDA-Public Use
  Company Number: None

PATIENT
  Age: 39 Year
  Sex: Male

DRUGS (1)
  1. ENBREL [Suspect]
     Active Substance: ETANERCEPT
     Dates: start: 200004

REACTIONS (4)
  - Injection site pain [None]
  - Nasopharyngitis [None]
  - Drug dose omission [None]
  - Infection [None]

NARRATIVE: CASE EVENT DATE: 20000904
